FAERS Safety Report 24732801 (Version 1)
Quarter: 2024Q4

REPORT INFORMATION
  Report Type: Report from Study
  Country: US (occurrence: US)
  Receive Date: 20241213
  Receipt Date: 20241213
  Transmission Date: 20250114
  Serious: Yes (Hospitalization, Other)
  Sender: ABBVIE
  Company Number: US-ABBVIE-6041437

PATIENT
  Age: 50 Year
  Sex: Male

DRUGS (1)
  1. CREON [Suspect]
     Active Substance: PANCRELIPASE AMYLASE\PANCRELIPASE LIPASE\PANCRELIPASE PROTEASE
     Indication: Product used for unknown indication
     Route: 048
     Dates: start: 202312

REACTIONS (4)
  - Liver transplant failure [Recovering/Resolving]
  - Arterial thrombosis [Recovering/Resolving]
  - Liver transplant rejection [Unknown]
  - Coma [Unknown]

NARRATIVE: CASE EVENT DATE: 20231217
